FAERS Safety Report 16404247 (Version 2)
Quarter: 2023Q2

REPORT INFORMATION
  Report Type: Spontaneous
  Country: BG (occurrence: BG)
  Receive Date: 20190607
  Receipt Date: 20230411
  Transmission Date: 20230722
  Serious: Yes (Hospitalization, Disabling, Other)
  Sender: FDA-Public Use
  Company Number: PHHY2019BG128514

PATIENT

DRUGS (10)
  1. TACROLIMUS [Suspect]
     Active Substance: TACROLIMUS
     Indication: Renal transplant
     Dosage: 96 MG
     Route: 065
  2. TACROLIMUS [Suspect]
     Active Substance: TACROLIMUS
     Indication: Immunosuppressant drug therapy
     Dosage: 6 MG, QD
     Route: 065
  3. TACROLIMUS [Suspect]
     Active Substance: TACROLIMUS
     Dosage: 6 MG, QD
     Route: 065
     Dates: start: 20150125, end: 20160209
  4. TACROLIMUS [Suspect]
     Active Substance: TACROLIMUS
     Dosage: 6 MG, QD
     Route: 065
     Dates: start: 20150125, end: 20160209
  5. CELLCEPT [Suspect]
     Active Substance: MYCOPHENOLATE MOFETIL
     Indication: Immunosuppressant drug therapy
     Dosage: 2000 MG, QD
     Route: 065
     Dates: start: 20150125
  6. METHYLPREDNISOLONE [Suspect]
     Active Substance: METHYLPREDNISOLONE
     Indication: Immunosuppressant drug therapy
     Dosage: 40 MG, QD
     Route: 065
     Dates: start: 20150125
  7. METHYLPREDNISOLONE [Suspect]
     Active Substance: METHYLPREDNISOLONE
     Indication: Renal transplant
  8. ULCOPROL [Concomitant]
     Indication: Gastritis prophylaxis
     Dosage: 40 MG, QD (40 MG, UNKNOWN FREQ.)
     Route: 048
     Dates: start: 20150125
  9. SULPERAZONE [Concomitant]
     Active Substance: CEFOPERAZONE SODIUM\SULBACTAM SODIUM
     Indication: Infection prophylaxis
     Dosage: 2000 MG (2000 MG, UNKNOWN FREQ.)
     Route: 042
     Dates: start: 20150326
  10. VALPROATE SODIUM [Concomitant]
     Active Substance: VALPROATE SODIUM
     Indication: Generalised tonic-clonic seizure
     Dosage: UNK (UNK UNK, UNKNOWN FREQ.)
     Route: 048
     Dates: start: 20150330

REACTIONS (5)
  - Kidney transplant rejection [Not Recovered/Not Resolved]
  - Lymphocele [Not Recovered/Not Resolved]
  - Sepsis [Recovered/Resolved]
  - Graft loss [Recovering/Resolving]
  - Thrombosis [Unknown]

NARRATIVE: CASE EVENT DATE: 20150209
